FAERS Safety Report 8049265-8 (Version None)
Quarter: 2012Q1

REPORT INFORMATION
  Report Type: 
  Country: None (occurrence: None)
  Receive Date: 20120117
  Receipt Date: 20120105
  Transmission Date: 20120608
  Serious: Yes (Other)
  Sender: FDA-Public Use
  Company Number: JP-ELI_LILLY_AND_COMPANY-JP201112000766

PATIENT
  Sex: Male
  Weight: 92 kg

DRUGS (3)
  1. CYMBALTA [Suspect]
     Indication: DEPRESSION
     Dosage: 60 MG, QD
     Route: 048
     Dates: start: 20110916, end: 20111120
  2. ZOLPIDEM [Concomitant]
     Indication: INSOMNIA
     Dosage: 5 MG, QD
     Route: 048
     Dates: start: 20110905, end: 20111205
  3. MUCOSTA [Concomitant]
     Indication: PROPHYLAXIS
     Dosage: 100 MG, BID
     Route: 048
     Dates: start: 20111005, end: 20111120

REACTIONS (2)
  - HEPATIC FUNCTION ABNORMAL [None]
  - BLOOD CREATINE PHOSPHOKINASE INCREASED [None]
